FAERS Safety Report 7438583-X (Version None)
Quarter: 2011Q2

REPORT INFORMATION
  Report Type: 
  Country: None (occurrence: None)
  Receive Date: 20110426
  Receipt Date: 20110421
  Transmission Date: 20111010
  Serious: Yes (Death, Other)
  Sender: FDA-Public Use
  Company Number: US-AMGEN-QUU402781

PATIENT
  Age: 81 Year
  Sex: Female

DRUGS (5)
  1. NPLATE [Suspect]
     Indication: IDIOPATHIC THROMBOCYTOPENIC PURPURA
     Dosage: 10 A?G/KG, UNK
     Dates: start: 20090429, end: 20100107
  2. HYDROXYCARBAMIDE [Concomitant]
     Dosage: UNK UNK, UNK
     Dates: start: 20090922, end: 20091001
  3. NPLATE [Suspect]
     Dates: start: 20090429, end: 20091231
  4. CORTICOSTEROID NOS [Concomitant]
     Dosage: UNK UNK, UNK
     Dates: start: 20080722
  5. PREDNISONE [Concomitant]
     Dosage: 40 MG, UNK
     Dates: start: 20090407

REACTIONS (10)
  - THERAPEUTIC RESPONSE DECREASED [None]
  - HAEMOGLOBIN DECREASED [None]
  - ACUTE MYELOMONOCYTIC LEUKAEMIA [None]
  - EPISTAXIS [None]
  - BLOOD BLISTER [None]
  - CONFUSIONAL STATE [None]
  - HYPHAEMA [None]
  - SPLENOMEGALY [None]
  - CHRONIC MYELOMONOCYTIC LEUKAEMIA [None]
  - CHRONIC MYELOID LEUKAEMIA TRANSFORMATION [None]
